FAERS Safety Report 8805963 (Version 1)
Quarter: 2012Q4

REPORT INFORMATION
  Report Type: Spontaneous
  Country: US (occurrence: None)
  Receive Date: 20120917
  Receipt Date: 20120917
  Transmission Date: 20130627
  Serious: Yes (Hospitalization, Other)
  Sender: FDA-Public Use
  Company Number: VAL_00838_2012

PATIENT
  Sex: Female

DRUGS (4)
  1. LOPRESSOR [Suspect]
  2. NORVASC [Suspect]
     Dosage: DF
  3. DILANTIN [Concomitant]
  4. DIAZEPAM [Concomitant]

REACTIONS (3)
  - Pancreatitis [None]
  - Allergy to chemicals [None]
  - Product quality issue [None]
